FAERS Safety Report 11667314 (Version 1)
Quarter: 2015Q4

REPORT INFORMATION
  Report Type: Spontaneous
  Country: US (occurrence: US)
  Receive Date: 20151027
  Receipt Date: 20151027
  Transmission Date: 20160304
  Serious: Yes (Hospitalization)
  Sender: FDA-Public Use
  Company Number: US-ELI_LILLY_AND_COMPANY-US201002005891

PATIENT
  Sex: Female

DRUGS (10)
  1. AMLODIPINE W/BENAZEPRIL [Concomitant]
     Active Substance: AMLODIPINE BESYLATE\BENAZEPRIL HYDROCHLORIDE
     Dosage: 10 MG, DAILY (1/D)
     Route: 065
  2. KLOR-CON M [Concomitant]
     Active Substance: POTASSIUM CHLORIDE
     Dosage: 20 D/F, 2/D
     Route: 065
  3. TRICOR [Concomitant]
     Active Substance: FENOFIBRATE
     Dosage: 145 MG, DAILY (1/D)
     Route: 065
  4. ACTOPLUS MET [Concomitant]
     Active Substance: METFORMIN HYDROCHLORIDE\PIOGLITAZONE HYDROCHLORIDE
     Dosage: 500 MG, 2/D
     Route: 065
  5. LOVAZA [Concomitant]
     Active Substance: OMEGA-3-ACID ETHYL ESTERS
     Dosage: 1 MG, 2/D
     Route: 065
  6. NOVOLIN [Concomitant]
     Active Substance: INSULIN HUMAN
     Dosage: 50 U, EACH MORNING
     Route: 065
  7. NOVOLIN [Concomitant]
     Active Substance: INSULIN HUMAN
     Dosage: 20 U, OTHER (NIGHT)
     Route: 065
  8. AMITRIP [Concomitant]
     Active Substance: AMITRIPTYLINE HYDROCHLORIDE
     Dosage: 25 MG, DAILY (1/D)
     Route: 065
  9. FUROSEMIDE. [Concomitant]
     Active Substance: FUROSEMIDE
     Dosage: 8 MG, 2/D
     Route: 065
  10. FORTEO [Suspect]
     Active Substance: TERIPARATIDE
     Indication: OSTEOPOROSIS
     Dosage: 20 UG, DAILY (1/D)
     Route: 065
     Dates: start: 2009

REACTIONS (1)
  - Pneumonia [Recovering/Resolving]
